FAERS Safety Report 4619037-2 (Version None)
Quarter: 2005Q1

REPORT INFORMATION
  Report Type: 
  Country: None (occurrence: None)
  Receive Date: 20050325
  Receipt Date: 20050316
  Transmission Date: 20050727
  Serious: Yes (Hospitalization)
  Sender: FDA-Public Use
  Company Number: US-ROCHE-399122

PATIENT
  Age: 69 Year
  Sex: Male
  Weight: 94.3 kg

DRUGS (4)
  1. PEGASYS [Suspect]
     Indication: HEPATITIS C
     Route: 058
     Dates: start: 20030115, end: 20030715
  2. PEGASYS [Suspect]
     Route: 058
     Dates: start: 20040115, end: 20040715
  3. PEGASYS [Suspect]
     Route: 058
     Dates: start: 20050313, end: 20050313
  4. RIBAVIRIN [Suspect]
     Indication: HEPATITIS C
     Route: 048
     Dates: start: 20030115, end: 20030715

REACTIONS (10)
  - ARTHRALGIA [None]
  - BLOOD IMMUNOGLOBULIN M INCREASED [None]
  - BLOOD IRON DECREASED [None]
  - CHILLS [None]
  - DEPRESSION [None]
  - HEART RATE INCREASED [None]
  - IDIOPATHIC THROMBOCYTOPENIC PURPURA [None]
  - PYREXIA [None]
  - RED BLOOD CELL COUNT DECREASED [None]
  - WHITE BLOOD CELL COUNT DECREASED [None]
